FAERS Safety Report 18707541 (Version 1)
Quarter: 2021Q1

REPORT INFORMATION
  Report Type: Spontaneous
  Country: US (occurrence: US)
  Receive Date: 20210106
  Receipt Date: 20210106
  Transmission Date: 20210419
  Serious: Yes (Death, Other)
  Sender: FDA-Public Use
  Company Number: US-009507513-2101USA000930

PATIENT
  Age: 66 Year
  Sex: Female

DRUGS (2)
  1. KEYTRUDA [Suspect]
     Active Substance: PEMBROLIZUMAB
     Indication: LUNG CANCER METASTATIC
  2. TAXOL [Concomitant]
     Active Substance: PACLITAXEL
     Indication: DISEASE PROGRESSION

REACTIONS (2)
  - Dyspnoea [Unknown]
  - Malignant neoplasm progression [Fatal]
